FAERS Safety Report 9781193 (Version 1)
Quarter: 2013Q4

REPORT INFORMATION
  Report Type: Spontaneous
  Country: US (occurrence: US)
  Receive Date: 20131224
  Receipt Date: 20131224
  Transmission Date: 20140711
  Serious: No
  Sender: FDA-Public Use
  Company Number: US-B.I. PHARMACEUTICALS,INC./RIDGEFIELD-2013-BI-41847BP

PATIENT
  Age: 57 Year
  Sex: Male

DRUGS (1)
  1. AGGRENOX [Suspect]
     Indication: ISCHAEMIC HEART DISEASE PROPHYLAXIS
     Dosage: STRENGTH: 25 MG / 200 MG; DAILY DOSE: 50 MG / 400 MG
     Route: 048
     Dates: start: 201312, end: 201312

REACTIONS (2)
  - Facial pain [Recovered/Resolved]
  - Headache [Recovered/Resolved]
